FAERS Safety Report 25035360 (Version 3)
Quarter: 2025Q2

REPORT INFORMATION
  Report Type: Report from Study
  Country: CA (occurrence: CA)
  Receive Date: 20250304
  Receipt Date: 20250408
  Transmission Date: 20250717
  Serious: Yes (Other)
  Sender: ALEXION PHARMACEUTICALS
  Company Number: CA-AstraZeneca-CH-00816298A

PATIENT
  Weight: 92.063 kg

DRUGS (3)
  1. ULTOMIRIS [Suspect]
     Active Substance: RAVULIZUMAB-CWVZ
     Indication: Myasthenia gravis
  2. ULTOMIRIS [Suspect]
     Active Substance: RAVULIZUMAB-CWVZ
  3. ULTOMIRIS [Suspect]
     Active Substance: RAVULIZUMAB-CWVZ
     Dosage: 3300 MILLIGRAM, Q8W

REACTIONS (9)
  - Glaucoma [Unknown]
  - Muscle contracture [Recovered/Resolved]
  - Muscular weakness [Recovered/Resolved]
  - Arthralgia [Unknown]
  - Myalgia [Unknown]
  - Breath odour [Recovered/Resolved]
  - Cardiac disorder [Unknown]
  - Weight increased [Unknown]
  - Malaise [Unknown]
